FAERS Safety Report 12419325 (Version 2)
Quarter: 2023Q4

REPORT INFORMATION
  Report Type: Spontaneous
  Country: US (occurrence: US)
  Receive Date: 20160531
  Receipt Date: 20231004
  Transmission Date: 20240109
  Serious: Yes (Other)
  Sender: FDA-Public Use
  Company Number: US-SUNOVION-2016SUN001327

PATIENT

DRUGS (10)
  1. APTIOM [Interacting]
     Active Substance: ESLICARBAZEPINE ACETATE
     Indication: Partial seizures
     Dosage: 1200 MG, HS
     Route: 048
     Dates: start: 201604
  2. APTIOM [Interacting]
     Active Substance: ESLICARBAZEPINE ACETATE
     Indication: Focal dyscognitive seizures
     Dosage: 400 MG, QAM
     Route: 048
  3. APTIOM [Interacting]
     Active Substance: ESLICARBAZEPINE ACETATE
     Dosage: 800 MG, HS
     Route: 048
  4. APTIOM [Interacting]
     Active Substance: ESLICARBAZEPINE ACETATE
     Dosage: 1000 MG, BID (400 MG AND 600 MG TAKEN TOGETHER TWICE DAILY)
     Route: 048
  5. TOPIRAMATE [Suspect]
     Active Substance: TOPIRAMATE
     Indication: Focal dyscognitive seizures
     Dosage: 250 MG, QD
     Route: 065
  6. TRILEPTAL [Suspect]
     Active Substance: OXCARBAZEPINE
     Indication: Partial seizures
     Dosage: UNK
     Route: 065
  7. ONFI [Interacting]
     Active Substance: CLOBAZAM
     Indication: Partial seizures
     Dosage: UNK
     Route: 065
  8. VIMPAT [Concomitant]
     Active Substance: LACOSAMIDE
     Dosage: UNK
  9. KEPPRA [Concomitant]
     Active Substance: LEVETIRACETAM
     Indication: Partial seizures
     Dosage: UNK
  10. DEPAKOTE [Concomitant]
     Active Substance: DIVALPROEX SODIUM
     Indication: Partial seizures
     Dosage: UNK

REACTIONS (9)
  - Seizure cluster [Not Recovered/Not Resolved]
  - Seizure [Not Recovered/Not Resolved]
  - Drug hypersensitivity [Not Recovered/Not Resolved]
  - Somnolence [Not Recovered/Not Resolved]
  - Bradyphrenia [Not Recovered/Not Resolved]
  - Labelled drug-drug interaction medication error [Unknown]
  - Overdose [Unknown]
  - Off label use [Unknown]
  - Inappropriate schedule of product administration [Unknown]

NARRATIVE: CASE EVENT DATE: 20160401
